FAERS Safety Report 11306271 (Version 1)
Quarter: 2015Q3

REPORT INFORMATION
  Report Type: Spontaneous
  Country: US (occurrence: US)
  Receive Date: 20150723
  Receipt Date: 20150723
  Transmission Date: 20151125
  Serious: No
  Sender: FDA-Public Use
  Company Number: US-BAUSCH-SP07994

PATIENT
  Age: 87 Year
  Sex: Female
  Weight: 47.67 kg

DRUGS (19)
  1. LEVOTHYROXINE. [Concomitant]
     Active Substance: LEVOTHYROXINE
  2. VITAMIN C [Concomitant]
     Active Substance: ASCORBIC ACID
  3. GLUCOSAMINE [Concomitant]
     Active Substance: GLUCOSAMINE
  4. KELP [Concomitant]
     Active Substance: KELP
  5. GARLIC. [Concomitant]
     Active Substance: GARLIC
  6. MAGNESIUM [Concomitant]
     Active Substance: MAGNESIUM
  7. VITAMIN B12 [Concomitant]
     Active Substance: CYANOCOBALAMIN
  8. OREGANOL [Concomitant]
  9. ACIDOPHILUS [Concomitant]
     Active Substance: LACTOBACILLUS ACIDOPHILUS
  10. TRI-IODINE [Concomitant]
  11. VITAMIN D [Concomitant]
     Active Substance: CHOLECALCIFEROL
  12. L-CARNITINE [Concomitant]
     Active Substance: LEVOCARNITINE
  13. ULTIMATE FLORA [Concomitant]
  14. RESVERATROL [Concomitant]
     Active Substance: RESVERATROL
  15. COQ10 [Concomitant]
     Active Substance: UBIDECARENONE
  16. GINKGO [Concomitant]
     Active Substance: GINKGO
  17. XIFAXAN [Suspect]
     Active Substance: RIFAXIMIN
     Indication: DIARRHOEA INFECTIOUS
     Route: 048
     Dates: start: 20140604, end: 20140622
  18. OLIVE LEAF [Concomitant]
  19. COD LIVER OIL [Concomitant]
     Active Substance: COD LIVER OIL

REACTIONS (4)
  - Drug ineffective [Recovered/Resolved]
  - Abnormal sensation in eye [Recovered/Resolved]
  - Urinary incontinence [Recovered/Resolved]
  - Joint swelling [Recovered/Resolved]

NARRATIVE: CASE EVENT DATE: 201406
